FAERS Safety Report 26004839 (Version 1)
Quarter: 2025Q4

REPORT INFORMATION
  Report Type: Spontaneous
  Country: JP (occurrence: JP)
  Receive Date: 20251106
  Receipt Date: 20251106
  Transmission Date: 20260118
  Serious: Yes (Other)
  Sender: ASTELLAS
  Company Number: JP-ASTELLAS-2025-AER-059473

PATIENT
  Age: 70 Year
  Sex: Male

DRUGS (19)
  1. TACROLIMUS [Suspect]
     Active Substance: TACROLIMUS
     Indication: Prophylaxis against graft versus host disease
     Route: 065
  2. GILTERITINIB [Suspect]
     Active Substance: GILTERITINIB
     Indication: Acute myeloid leukaemia
     Route: 065
  3. GILTERITINIB [Suspect]
     Active Substance: GILTERITINIB
     Route: 065
  4. GILTERITINIB [Suspect]
     Active Substance: GILTERITINIB
     Route: 065
  5. GILTERITINIB [Suspect]
     Active Substance: GILTERITINIB
     Route: 065
  6. GILTERITINIB [Suspect]
     Active Substance: GILTERITINIB
     Route: 065
  7. GILTERITINIB [Suspect]
     Active Substance: GILTERITINIB
     Route: 065
  8. VENETOCLAX [Concomitant]
     Active Substance: VENETOCLAX
     Indication: Chemotherapy
     Route: 065
  9. VENETOCLAX [Concomitant]
     Active Substance: VENETOCLAX
     Route: 065
  10. VENETOCLAX [Concomitant]
     Active Substance: VENETOCLAX
     Route: 065
  11. AZACITIDINE [Concomitant]
     Active Substance: AZACITIDINE
     Indication: Chemotherapy
     Route: 065
  12. AZACITIDINE [Concomitant]
     Active Substance: AZACITIDINE
     Route: 065
  13. AZACITIDINE [Concomitant]
     Active Substance: AZACITIDINE
     Route: 065
  14. FLUDARABINE [Concomitant]
     Active Substance: FLUDARABINE PHOSPHATE
     Indication: Bone marrow conditioning regimen
     Route: 065
  15. BUSULFAN [Concomitant]
     Active Substance: BUSULFAN
     Indication: Bone marrow conditioning regimen
     Route: 065
  16. METHOTREXATE [Concomitant]
     Active Substance: METHOTREXATE
     Indication: Prophylaxis against graft versus host disease
     Dosage: DAY 1
     Route: 065
  17. METHOTREXATE [Concomitant]
     Active Substance: METHOTREXATE
     Dosage: DAY 3
     Route: 065
  18. METHOTREXATE [Concomitant]
     Active Substance: METHOTREXATE
     Dosage: DAY 6
     Route: 065
  19. LAPINE T-LYMPHOCYTE IMMUNE GLOBULIN [Concomitant]
     Active Substance: LAPINE T-LYMPHOCYTE IMMUNE GLOBULIN
     Indication: Prophylaxis against graft versus host disease
     Dosage: TOTAL 2.5MG/KG
     Route: 065

REACTIONS (3)
  - Graft versus host disease in skin [Unknown]
  - Acute myeloid leukaemia recurrent [Unknown]
  - Full blood count decreased [Unknown]
